FAERS Safety Report 11523141 (Version 2)
Quarter: 2015Q3

REPORT INFORMATION
  Report Type: Report from Study
  Country: US (occurrence: US)
  Receive Date: 20150918
  Receipt Date: 20150924
  Transmission Date: 20151125
  Serious: Yes (Hospitalization)
  Sender: FDA-Public Use
  Company Number: US-GLAXOSMITHKLINE-US2015GSK127342

PATIENT
  Age: 70 Year
  Sex: Male
  Weight: 81 kg

DRUGS (6)
  1. METFORMIN [Concomitant]
     Active Substance: METFORMIN HYDROCHLORIDE
  2. CISPLATIN. [Suspect]
     Active Substance: CISPLATIN
     Indication: HEAD AND NECK CANCER
     Dosage: UNK, CYC
     Route: 042
     Dates: start: 20150803
  3. XALATAN [Concomitant]
     Active Substance: LATANOPROST
  4. TYKERB [Suspect]
     Active Substance: LAPATINIB DITOSYLATE
     Indication: HEAD AND NECK CANCER
     Dosage: UNK, QD
     Route: 048
     Dates: start: 20150727
  5. LOSAR H (HYDROCHLOROTHIAZIDE + LOSARTAN POTASSIUM) [Concomitant]
  6. ZOCOR [Concomitant]
     Active Substance: SIMVASTATIN

REACTIONS (1)
  - Decreased appetite [Not Recovered/Not Resolved]

NARRATIVE: CASE EVENT DATE: 20150903
